FAERS Safety Report 14420573 (Version 1)
Quarter: 2018Q1

REPORT INFORMATION
  Report Type: Spontaneous
  Country: US (occurrence: US)
  Receive Date: 20180122
  Receipt Date: 20180122
  Transmission Date: 20180509
  Serious: No
  Sender: FDA-Public Use
  Company Number: US-ROCHE-1950709

PATIENT
  Sex: Female

DRUGS (1)
  1. RITUXAN [Suspect]
     Active Substance: RITUXIMAB
     Indication: RHEUMATOID ARTHRITIS
     Dosage: RECEIVED 1000 MG PER METER SQUARE DOSE INSTEAD OF FLAT 1000 MG DOSE
     Route: 042

REACTIONS (2)
  - No adverse event [Unknown]
  - Incorrect dose administered [Unknown]
